FAERS Safety Report 8049194-X (Version None)
Quarter: 2012Q1

REPORT INFORMATION
  Report Type: 
  Country: None (occurrence: None)
  Receive Date: 20120117
  Receipt Date: 20120112
  Transmission Date: 20120608
  Serious: Yes (Hospitalization)
  Sender: FDA-Public Use
  Company Number: US-AMGEN-USASP2012002376

PATIENT

DRUGS (1)
  1. ENBREL [Suspect]
     Dosage: 25 MG, 2 TIMES/WK
     Route: 064
     Dates: start: 20000101

REACTIONS (2)
  - FOETAL HEART RATE DECREASED [None]
  - FOETAL MONITORING ABNORMAL [None]
